FAERS Safety Report 20525362 (Version 1)
Quarter: 2022Q1

REPORT INFORMATION
  Report Type: Spontaneous
  Country: CN (occurrence: CN)
  Receive Date: 20220228
  Receipt Date: 20220228
  Transmission Date: 20220423
  Serious: Yes (Hospitalization, Other)
  Sender: FDA-Public Use
  Company Number: CN-GLAXOSMITHKLINE-CN2022APC031645

PATIENT
  Age: 61 Year
  Sex: Female
  Weight: 48 kg

DRUGS (2)
  1. BENLYSTA [Suspect]
     Active Substance: BELIMUMAB
     Indication: Systemic lupus erythematosus
     Dosage: 480 MG, QD
     Route: 042
     Dates: start: 20211122, end: 20211230
  2. LEVOFLOXACIN [Suspect]
     Active Substance: LEVOFLOXACIN
     Indication: Infection
     Dosage: 0.5 G, QD
     Route: 048

REACTIONS (4)
  - Urinary tract infection [Unknown]
  - Pollakiuria [Unknown]
  - Dysuria [Unknown]
  - Drug resistance [Unknown]

NARRATIVE: CASE EVENT DATE: 20220206
